FAERS Safety Report 9695978 (Version 1)
Quarter: 2013Q4

REPORT INFORMATION
  Report Type: Spontaneous
  Country: DE (occurrence: DE)
  Receive Date: 20131119
  Receipt Date: 20131119
  Transmission Date: 20140711
  Serious: Yes (Life-Threatening, Other)
  Sender: FDA-Public Use
  Company Number: DE-BRISTOL-MYERS SQUIBB COMPANY-19815901

PATIENT
  Sex: Female

DRUGS (3)
  1. METFORMIN HCL [Suspect]
  2. TRAMAL [Concomitant]
  3. FOLIC ACID [Concomitant]

REACTIONS (3)
  - Meningomyelocele [Not Recovered/Not Resolved]
  - Ectopia cordis [Not Recovered/Not Resolved]
  - Gastroschisis [Not Recovered/Not Resolved]
